FAERS Safety Report 4765120-0 (Version None)
Quarter: 2005Q3

REPORT INFORMATION
  Report Type: 
  Country: None (occurrence: None)
  Receive Date: 20050907
  Receipt Date: 20050825
  Transmission Date: 20060218
  Serious: Yes (Hospitalization)
  Sender: FDA-Public Use
  Company Number: 217276

PATIENT
  Sex: Female

DRUGS (1)
  1. NUTROPIN AQ [Suspect]

REACTIONS (2)
  - DEVICE MALFUNCTION [None]
  - OVERDOSE [None]
